FAERS Safety Report 17019669 (Version 1)
Quarter: 2019Q4

REPORT INFORMATION
  Report Type: Spontaneous
  Country: US (occurrence: US)
  Receive Date: 20191112
  Receipt Date: 20191112
  Transmission Date: 20200122
  Serious: Yes (Other)
  Sender: FDA-Public Use
  Company Number: US-BTG-201900150

PATIENT
  Age: 14 Year
  Sex: Female
  Weight: 60 kg

DRUGS (3)
  1. CROFAB [Suspect]
     Active Substance: CROTALIDAE POLYVALENT IMMUNE FAB (OVINE)
     Indication: SNAKE BITE
     Dosage: 6 VIALS START AT 21:29 AND END AT 00:03
     Route: 042
     Dates: start: 20190605, end: 20190606
  2. CROFAB [Suspect]
     Active Substance: CROTALIDAE POLYVALENT IMMUNE FAB (OVINE)
     Indication: SNAKE BITE
     Dosage: 5 VIALS START AT 02:44 AND END AT 06:15
     Route: 042
     Dates: start: 20190606, end: 20190606
  3. CROFAB [Suspect]
     Active Substance: CROTALIDAE POLYVALENT IMMUNE FAB (OVINE)
     Indication: SNAKE BITE
     Dosage: 6 VIALS START AT 11:25 AND END AT 14:42
     Route: 042
     Dates: start: 20190606, end: 20190606

REACTIONS (3)
  - Throat irritation [Recovered/Resolved]
  - Inappropriate schedule of product administration [Unknown]
  - Wheezing [Recovered/Resolved]

NARRATIVE: CASE EVENT DATE: 20190605
